FAERS Safety Report 5815035-1 (Version None)
Quarter: 2008Q3

REPORT INFORMATION
  Report Type: 
  Country: None (occurrence: None)
  Receive Date: 20080718
  Receipt Date: 20080711
  Transmission Date: 20090109
  Serious: Yes (Hospitalization)
  Sender: FDA-Public Use
  Company Number: B0528823A

PATIENT
  Age: 65 Year
  Sex: Male

DRUGS (7)
  1. PAXIL [Suspect]
     Indication: MAJOR DEPRESSION
     Dosage: 40MG PER DAY
     Route: 048
     Dates: start: 20080610, end: 20080623
  2. ZANTAC [Concomitant]
     Indication: DUODENAL ULCER
     Dosage: 150MG TWICE PER DAY
     Route: 048
  3. LENDORMIN [Concomitant]
     Indication: INSOMNIA
     Dosage: .25MG PER DAY
     Route: 048
  4. GLYSENNID [Concomitant]
     Indication: CONSTIPATION
     Dosage: 24MG PER DAY
     Route: 048
  5. MAGNESIUM OXIDE [Concomitant]
     Indication: CONSTIPATION
     Dosage: 660MG THREE TIMES PER DAY
     Route: 048
  6. POLYFUL [Concomitant]
     Indication: CONSTIPATION
     Dosage: 500MG THREE TIMES PER DAY
     Route: 048
     Dates: start: 20080514
  7. ANAFRANIL [Concomitant]
     Indication: MAJOR DEPRESSION
     Dosage: 25MG PER DAY
     Route: 042
     Dates: start: 20080606, end: 20080608

REACTIONS (3)
  - BLOOD OSMOLARITY DECREASED [None]
  - BLOOD SODIUM DECREASED [None]
  - INAPPROPRIATE ANTIDIURETIC HORMONE SECRETION [None]
